FAERS Safety Report 25757964 (Version 1)
Quarter: 2025Q3

REPORT INFORMATION
  Report Type: Spontaneous
  Country: US (occurrence: US)
  Receive Date: 20250903
  Receipt Date: 20250903
  Transmission Date: 20251020
  Serious: Yes (Other)
  Sender: JOHNSON AND JOHNSON
  Company Number: US-JNJFOC-20250831510

PATIENT
  Age: 51 Year
  Sex: Male

DRUGS (2)
  1. SPRAVATO [Suspect]
     Active Substance: ESKETAMINE
     Indication: Depression
     Route: 045
     Dates: start: 20250707, end: 20250707
  2. SPRAVATO [Suspect]
     Active Substance: ESKETAMINE
     Route: 045
     Dates: start: 20250709, end: 20250818

REACTIONS (10)
  - Narcolepsy [Unknown]
  - Loss of consciousness [Unknown]
  - Road traffic accident [Unknown]
  - Balance disorder [Unknown]
  - Speech disorder [Unknown]
  - Mood swings [Unknown]
  - Agitation [Unknown]
  - Irritability [Unknown]
  - Head injury [Unknown]
  - Fall [Unknown]

NARRATIVE: CASE EVENT DATE: 20250101
